FAERS Safety Report 6745105-5 (Version None)
Quarter: 2010Q2

REPORT INFORMATION
  Report Type: 
  Country: None (occurrence: None)
  Receive Date: 20100527
  Receipt Date: 20100517
  Transmission Date: 20101027
  Serious: Yes (Other)
  Sender: FDA-Public Use
  Company Number: TW-WATSON-2010-06805

PATIENT
  Age: 26 Year
  Sex: Female

DRUGS (5)
  1. LORAZEPAM [Suspect]
     Indication: TARDIVE DYSKINESIA
     Dosage: 1.5 MG, DAILY
     Route: 048
     Dates: start: 20080101
  2. BIPIDEN [Suspect]
     Indication: TARDIVE DYSKINESIA
     Dosage: 1.5 MG DAILY
     Dates: start: 20080101
  3. QUETIAPINE [Suspect]
     Indication: SCHIZOPHRENIA
     Dosage: 200 MG DAILY
  4. ARIPIPRAZOLE [Suspect]
     Indication: SCHIZOPHRENIA
     Dosage: 10 MG DAILY
  5. CLOZAPINE [Suspect]
     Indication: SCHIZOPHRENIA
     Dosage: 50 MG DAILY

REACTIONS (2)
  - MYASTHENIA GRAVIS [None]
  - RESPIRATORY FAILURE [None]
